FAERS Safety Report 6102886-1 (Version None)
Quarter: 2009Q1

REPORT INFORMATION
  Report Type: 
  Country: None (occurrence: None)
  Receive Date: 20090227
  Receipt Date: 20090213
  Transmission Date: 20090719
  Serious: Yes (Hospitalization)
  Sender: FDA-Public Use
  Company Number: AMI0010764

PATIENT
  Sex: Male

DRUGS (2)
  1. PENICILLAMINE, 500 MG [Suspect]
     Indication: HEPATO-LENTICULAR DEGENERATION
     Dosage: 500MG PO QID
     Route: 048
     Dates: start: 20050401, end: 20081001
  2. ZINC [Concomitant]

REACTIONS (3)
  - HYPOGAMMAGLOBULINAEMIA [None]
  - NO THERAPEUTIC RESPONSE [None]
  - PNEUMONIA [None]
